FAERS Safety Report 9795714 (Version 1)
Quarter: 2014Q1

REPORT INFORMATION
  Report Type: Spontaneous
  Country: FR (occurrence: FR)
  Receive Date: 20140103
  Receipt Date: 20140103
  Transmission Date: 20141002
  Serious: Yes (Hospitalization, Other)
  Sender: FDA-Public Use
  Company Number: FR-ELI_LILLY_AND_COMPANY-FR201312008648

PATIENT
  Age: 25 Year
  Sex: Male

DRUGS (5)
  1. ZYPREXA [Suspect]
     Indication: PSYCHIATRIC DECOMPENSATION
     Dosage: 10 MG, BID
     Route: 048
     Dates: start: 20130808, end: 20130816
  2. ZYPREXA [Interacting]
     Indication: MENTAL DISORDER
     Dosage: 1 DF, UNKNOWN
     Route: 065
  3. VALIUM /00017001/ [Interacting]
     Indication: PSYCHIATRIC DECOMPENSATION
     Dosage: 1 DF, UNKNOWN
     Route: 048
     Dates: start: 20130808, end: 20130812
  4. LOXAPAC /00401801/ [Interacting]
     Indication: PSYCHIATRIC DECOMPENSATION
     Dosage: 120 GTT, QID
     Route: 048
     Dates: start: 20130808, end: 20130812
  5. THERALENE [Interacting]
     Indication: PSYCHIATRIC DECOMPENSATION
     Dosage: 1 DF, SINGLE
     Route: 048
     Dates: start: 20130813, end: 20130813

REACTIONS (3)
  - Stevens-Johnson syndrome [Unknown]
  - Herpes virus infection [Unknown]
  - Drug interaction [Unknown]
